FAERS Safety Report 21147457 (Version 1)
Quarter: 2022Q3

REPORT INFORMATION
  Report Type: Spontaneous
  Country: US (occurrence: None)
  Receive Date: 20220728
  Receipt Date: 20220728
  Transmission Date: 20221027
  Serious: Yes (Death)
  Sender: FDA-Public Use
  Company Number: None

PATIENT
  Age: 84 Year
  Sex: Male

DRUGS (1)
  1. BUPRENORPHINE\NALOXONE [Suspect]
     Active Substance: BUPRENORPHINE\NALOXONE

REACTIONS (14)
  - Asthenia [None]
  - Acute kidney injury [None]
  - Liver function test increased [None]
  - Hepatic vein occlusion [None]
  - Hepatitis alcoholic [None]
  - Therapy interrupted [None]
  - Somnolence [None]
  - Pain [None]
  - Hyperammonaemia [None]
  - Respiratory disorder [None]
  - Unresponsive to stimuli [None]
  - Hypotension [None]
  - Hypothermia [None]
  - Encephalopathy [None]

NARRATIVE: CASE EVENT DATE: 20220407
